FAERS Safety Report 6408154-2 (Version None)
Quarter: 2009Q4

REPORT INFORMATION
  Report Type: 
  Country: None (occurrence: None)
  Receive Date: 20091021
  Receipt Date: 20091008
  Transmission Date: 20100525
  Serious: No
  Sender: FDA-Public Use
  Company Number: US-BAYER-200928324NA

PATIENT
  Age: 53 Year
  Sex: Male
  Weight: 104 kg

DRUGS (1)
  1. MAGNEVIST [Suspect]
     Indication: NUCLEAR MAGNETIC RESONANCE IMAGING ABDOMINAL
     Dosage: TOTAL DAILY DOSE: 20 ML  UNIT DOSE: 20 ML
     Route: 042
     Dates: start: 20090712, end: 20090712

REACTIONS (4)
  - DRY MOUTH [None]
  - NASAL CONGESTION [None]
  - OROPHARYNGEAL DISCOMFORT [None]
  - URTICARIA [None]
